FAERS Safety Report 24292499 (Version 1)
Quarter: 2024Q3

REPORT INFORMATION
  Report Type: Spontaneous
  Country: US (occurrence: None)
  Receive Date: 20240906
  Receipt Date: 20240906
  Transmission Date: 20241016
  Serious: No
  Sender: Public
  Company Number: None

PATIENT
  Age: 63 Year
  Sex: Male

DRUGS (1)
  1. SIMPONI [Suspect]
     Active Substance: GOLIMUMAB
     Indication: Rheumatoid arthritis
     Dosage: INJECT 100MG SUBCUTANEOUSLY EVERY 4 WEEKS AS DIRECTED.    ?
     Route: 058
     Dates: start: 201810

REACTIONS (1)
  - Spinal operation [None]
